FAERS Safety Report 11787889 (Version 1)
Quarter: 2015Q4

REPORT INFORMATION
  Report Type: Report from Study
  Country: US (occurrence: US)
  Receive Date: 20151130
  Receipt Date: 20151130
  Transmission Date: 20160305
  Serious: No
  Sender: FDA-Public Use
  Company Number: US-AMGEN-USASL2015125701

PATIENT
  Age: 63 Year
  Sex: Female

DRUGS (1)
  1. ENBREL [Suspect]
     Active Substance: ETANERCEPT
     Indication: PRODUCT USED FOR UNKNOWN INDICATION
     Dosage: 50 MG, ONCE WEEKLY
     Route: 065
     Dates: start: 200302

REACTIONS (5)
  - Sinusitis [Unknown]
  - Infection [Recovered/Resolved]
  - Upper respiratory tract infection [Unknown]
  - Inappropriate schedule of drug administration [Unknown]
  - Mole excision [Unknown]

NARRATIVE: CASE EVENT DATE: 201504
